FAERS Safety Report 21194370 (Version 1)
Quarter: 2022Q3

REPORT INFORMATION
  Report Type: Spontaneous
  Country: US (occurrence: US)
  Receive Date: 20220810
  Receipt Date: 20220810
  Transmission Date: 20221026
  Serious: No
  Sender: FDA-Public Use
  Company Number: US-BEH-2022148255

PATIENT
  Sex: Female

DRUGS (2)
  1. HIZENTRA [Suspect]
     Active Substance: HUMAN IMMUNOGLOBULIN G
     Indication: Immunodeficiency common variable
     Dosage: 8 GRAM, QW
     Route: 058
     Dates: start: 20210111
  2. HIZENTRA [Suspect]
     Active Substance: HUMAN IMMUNOGLOBULIN G
     Dosage: 10 GRAM, QW
     Route: 058
     Dates: start: 20210111

REACTIONS (6)
  - Peripheral swelling [Unknown]
  - Joint swelling [Unknown]
  - Pain [Unknown]
  - Skin irritation [Unknown]
  - Pruritus [Unknown]
  - Peripheral swelling [Unknown]
